FAERS Safety Report 17451769 (Version 14)
Quarter: 2021Q4

REPORT INFORMATION
  Report Type: Report from Study
  Country: DE (occurrence: DE)
  Receive Date: 20200224
  Receipt Date: 20211020
  Transmission Date: 20220303
  Serious: Yes (Hospitalization)
  Sender: FDA-Public Use
  Company Number: DE-EISAI MEDICAL RESEARCH-EC-2020-070564

PATIENT
  Age: 67 Year
  Sex: Female
  Weight: 79 kg

DRUGS (19)
  1. LENVATINIB [Suspect]
     Active Substance: LENVATINIB
     Indication: Hepatocellular carcinoma
     Dosage: 12 MILLIGRAM (BODY WEIGHT (BW) GREATER THAN OR EQUAL TO 60 KG
     Route: 048
     Dates: start: 20191105, end: 20191208
  2. LENVATINIB [Suspect]
     Active Substance: LENVATINIB
     Dosage: 12 MILLIGRAM (BODY WEIGHT (BW) GREATER THAN OR EQUAL TO 60 KG
     Route: 048
     Dates: start: 20191210, end: 20191220
  3. LENVATINIB [Suspect]
     Active Substance: LENVATINIB
     Dosage: STARTING DOSE AT 12 MG (BODY WEIGHT (BW) GREATER THAN OR EQUAL TO 60 KG); FLUCTUATED DOSAGE
     Route: 048
     Dates: start: 20200107, end: 20200308
  4. LENVATINIB [Suspect]
     Active Substance: LENVATINIB
     Dosage: 4 MILLIGRAM (BODY WEIGHT (BW) { 60 KG
     Route: 048
     Dates: start: 20200309, end: 20200322
  5. LENVATINIB [Suspect]
     Active Substance: LENVATINIB
     Dosage: 4 MILLIGRAM (BODY WEIGHT (BW) { 60 KG
     Route: 048
     Dates: start: 20200324
  6. PEMBROLIZUMAB [Suspect]
     Active Substance: PEMBROLIZUMAB
     Indication: Hepatocellular carcinoma
     Route: 041
     Dates: start: 20191105, end: 20191105
  7. PEMBROLIZUMAB [Suspect]
     Active Substance: PEMBROLIZUMAB
     Route: 041
     Dates: start: 20191127, end: 20191127
  8. PEMBROLIZUMAB [Suspect]
     Active Substance: PEMBROLIZUMAB
     Route: 041
     Dates: start: 20200107, end: 20200205
  9. PEMBROLIZUMAB [Suspect]
     Active Substance: PEMBROLIZUMAB
     Route: 041
     Dates: start: 20200309, end: 20200309
  10. CHOLECALCIFEROL [Concomitant]
     Active Substance: CHOLECALCIFEROL
     Dates: start: 201801
  11. OMEPRAZOLE [Concomitant]
     Active Substance: OMEPRAZOLE
     Dates: start: 200001
  12. SIMVASTATIN [Concomitant]
     Active Substance: SIMVASTATIN
     Dates: start: 201901
  13. BISOPROLOL [Concomitant]
     Active Substance: BISOPROLOL
     Dates: start: 200001
  14. HYDROCHLOROTHIAZIDE [Concomitant]
     Active Substance: HYDROCHLOROTHIAZIDE
     Dates: start: 200001
  15. PROTAPHANE [Concomitant]
     Active Substance: INSULIN HUMAN
     Dates: start: 201305
  16. NALOXONE HYDROCHLORIDE\TILIDINE HYDROCHLORIDE [Concomitant]
     Active Substance: NALOXONE HYDROCHLORIDE\TILIDINE HYDROCHLORIDE
     Dates: start: 201401
  17. NOVALGIN (METAMIZOLE SODIUM) [Concomitant]
     Active Substance: METAMIZOLE SODIUM
     Dates: start: 200001
  18. MAGNESIUM [Concomitant]
     Active Substance: MAGNESIUM
     Dates: start: 20191127
  19. RAMIPRIL [Concomitant]
     Active Substance: RAMIPRIL
     Dates: start: 20191127, end: 20191210

REACTIONS (4)
  - Diarrhoea [Not Recovered/Not Resolved]
  - Enterocolitis infectious [Recovered/Resolved]
  - Hyponatraemia [Recovered/Resolved]
  - Hypervolaemia [Recovered/Resolved]

NARRATIVE: CASE EVENT DATE: 20191211
